FAERS Safety Report 4385496-6 (Version None)
Quarter: 2004Q2

REPORT INFORMATION
  Report Type: 
  Country: None (occurrence: None)
  Receive Date: 20040622
  Receipt Date: 20040609
  Transmission Date: 20050107
  Serious: Yes (Other)
  Sender: FDA-Public Use
  Company Number: 2004-117158-NL

PATIENT
  Age: 44 Year
  Sex: Female

DRUGS (8)
  1. NUVARING [Suspect]
     Indication: MENORRHAGIA
     Dosage: VAGINAL
     Route: 067
     Dates: start: 20040301
  2. PLAQUENIL [Suspect]
     Indication: URTICARIA
     Dates: start: 20031101, end: 20040607
  3. KETOTIFEN [Concomitant]
  4. ZYRTEC [Concomitant]
  5. ZANTAC [Concomitant]
  6. SINGULAIR [Concomitant]
  7. PERIACTIN [Concomitant]
  8. IRON [Concomitant]

REACTIONS (6)
  - ANAPHYLACTIC REACTION [None]
  - DYSPAREUNIA [None]
  - PRURITUS [None]
  - URETHRAL PAIN [None]
  - VAGINAL BURNING SENSATION [None]
  - VAGINITIS [None]
